FAERS Safety Report 18120736 (Version 1)
Quarter: 2020Q3

REPORT INFORMATION
  Report Type: Spontaneous
  Country: CA (occurrence: CA)
  Receive Date: 20200806
  Receipt Date: 20200806
  Transmission Date: 20201103
  Serious: Yes (Disabling)
  Sender: FDA-Public Use
  Company Number: CA-PURDUE-USA-2020-0160710

PATIENT
  Age: 11 Year
  Sex: Male
  Weight: 39 kg

DRUGS (1)
  1. METHYLPHENIDATE HYDROCHLORIDE. [Suspect]
     Active Substance: METHYLPHENIDATE HYDROCHLORIDE
     Indication: ATTENTION DEFICIT HYPERACTIVITY DISORDER
     Dosage: 1 DF, DAILY
     Route: 048

REACTIONS (7)
  - Enuresis [Recovered/Resolved]
  - Disturbance in attention [Recovered/Resolved]
  - Abnormal behaviour [Recovered/Resolved]
  - Product substitution issue [Recovered/Resolved]
  - Memory impairment [Recovered/Resolved]
  - Aggression [Recovered/Resolved]
  - Anger [Recovered/Resolved]
